FAERS Safety Report 5851467-3 (Version None)
Quarter: 2008Q3

REPORT INFORMATION
  Report Type: 
  Country: None (occurrence: None)
  Receive Date: 20080820
  Receipt Date: 20080812
  Transmission Date: 20090109
  Serious: Yes (Other)
  Sender: FDA-Public Use
  Company Number: US-JNJFOC-20080803156

PATIENT
  Sex: Female
  Weight: 83.92 kg

DRUGS (3)
  1. INVEGA [Suspect]
     Indication: BIPOLAR DISORDER
     Route: 048
  2. LEXAPRO [Concomitant]
     Indication: BIPOLAR DISORDER
     Route: 048
  3. VISTERAL [Concomitant]
     Indication: BIPOLAR DISORDER

REACTIONS (2)
  - DRUG SCREEN POSITIVE [None]
  - TARDIVE DYSKINESIA [None]
